FAERS Safety Report 5694411-4 (Version None)
Quarter: 2008Q2

REPORT INFORMATION
  Report Type: 
  Country: None (occurrence: None)
  Receive Date: 20080403
  Receipt Date: 20080403
  Transmission Date: 20081010
  Serious: Yes (Hospitalization)
  Sender: FDA-Public Use
  Company Number: None

PATIENT
  Age: 36 Year
  Sex: Female
  Weight: 54.4316 kg

DRUGS (3)
  1. WELLBUTRIN [Suspect]
     Indication: ANXIETY
     Dosage: 300 MG ONCE PER DAY PO
     Route: 048
     Dates: start: 20050301, end: 20051201
  2. WELLBUTRIN [Suspect]
     Indication: DEPRESSION
     Dosage: 300 MG ONCE PER DAY PO
     Route: 048
     Dates: start: 20050301, end: 20051201
  3. WELLBUTRIN [Suspect]
     Dosage: 450 MG ONCE PER DAY PO
     Route: 048
     Dates: start: 20051201, end: 20051217

REACTIONS (2)
  - GRAND MAL CONVULSION [None]
  - TIC [None]
